FAERS Safety Report 14224740 (Version 1)
Quarter: 2017Q4

REPORT INFORMATION
  Report Type: Spontaneous
  Country: DE (occurrence: DE)
  Receive Date: 20171127
  Receipt Date: 20171127
  Transmission Date: 20180321
  Serious: Yes (Death, Other)
  Sender: FDA-Public Use
  Company Number: DE-AMGEN-DEUSP2017176239

PATIENT

DRUGS (6)
  1. RITUXIMAB. [Suspect]
     Active Substance: RITUXIMAB
     Indication: B-CELL LYMPHOMA
     Dosage: 375 MG/M2, Q2WK  (THERAPY GIVEN IN 8 BI-WEEKLY DOSES IN SIX CYCLES)
     Route: 042
  2. DOXORUBICIN [Suspect]
     Active Substance: DOXORUBICIN
     Indication: B-CELL LYMPHOMA
     Dosage: 50 MG/M2, CYCLICAL (THERAPY GIVEN IN SIX CYCLES)
     Route: 042
  3. CYCLOPHOSPHAMIDE. [Suspect]
     Active Substance: CYCLOPHOSPHAMIDE
     Indication: B-CELL LYMPHOMA
     Dosage: 750 MG/M2, CYCLICAL (THERAPY GIVEN IN SIX CYCLES)
     Route: 042
  4. FILGRASTIM [Suspect]
     Active Substance: FILGRASTIM
     Indication: B-CELL LYMPHOMA
     Dosage: UNK (THERAPY RECEIVED FROM DAY 6 UNTIL RECOVERY OF LEUCOCYTES)
     Route: 065
  5. VINCRISTINE [Suspect]
     Active Substance: VINCRISTINE
     Indication: B-CELL LYMPHOMA
     Dosage: 2 MG, CYCLICAL (THERAPY GIVEN ON DAY 1 IN SIX CYCLES)
     Route: 042
  6. PREDNISONE. [Suspect]
     Active Substance: PREDNISONE
     Indication: B-CELL LYMPHOMA
     Dosage: 100 MG, CYCLICAL (THERAPY GIVEN ON DAYS 1 TO 5 IN SIX CYCLES)
     Route: 048

REACTIONS (16)
  - Platelet transfusion [Unknown]
  - Mucosal inflammation [Unknown]
  - Metastasis [Unknown]
  - Neuropathy peripheral [Unknown]
  - Arrhythmia [Unknown]
  - Central nervous system lymphoma [Unknown]
  - Cardiac failure [Unknown]
  - Embolism [Fatal]
  - Anaemia [Unknown]
  - Myelodysplastic syndrome [Unknown]
  - Leukopenia [Unknown]
  - Myeloid leukaemia [Unknown]
  - Myocardial infarction [Fatal]
  - Infection [Fatal]
  - Thrombocytopenia [Unknown]
  - Packed red blood cell transfusion [Unknown]
